FAERS Safety Report 4747721-9 (Version None)
Quarter: 2005Q3

REPORT INFORMATION
  Report Type: 
  Country: None (occurrence: None)
  Receive Date: 20050816
  Receipt Date: 20050803
  Transmission Date: 20060218
  Serious: Yes (Hospitalization)
  Sender: FDA-Public Use
  Company Number: 199750

PATIENT
  Age: 24 Year
  Sex: Female
  Weight: 90.7194 kg

DRUGS (2)
  1. AVONEX [Suspect]
     Indication: MULTIPLE SCLEROSIS
     Dosage: 30 UG;QW;IM; SEE IMAGE
     Route: 030
     Dates: start: 20010101, end: 20040101
  2. AVONEX [Suspect]
     Indication: MULTIPLE SCLEROSIS
     Dosage: 30 UG;QW;IM; SEE IMAGE
     Route: 030
     Dates: start: 20040101

REACTIONS (9)
  - AMNESIA [None]
  - ANXIETY [None]
  - BLADDER SPASM [None]
  - CONDITION AGGRAVATED [None]
  - DYSURIA [None]
  - MICTURITION URGENCY [None]
  - MUSCLE SPASMS [None]
  - POLLAKIURIA [None]
  - URINARY RETENTION [None]
